FAERS Safety Report 11969761 (Version 1)
Quarter: 2016Q1

REPORT INFORMATION
  Report Type: Spontaneous
  Country: KR (occurrence: KR)
  Receive Date: 20160128
  Receipt Date: 20160128
  Transmission Date: 20160526
  Serious: Yes (Hospitalization)
  Sender: FDA-Public Use
  Company Number: KR-AMGEN-KORCT2016009340

PATIENT
  Age: 68 Year
  Sex: Male
  Weight: 71.1 kg

DRUGS (11)
  1. ARGAMATE [Concomitant]
     Active Substance: CALCIUM POLYSTYRENE SULFONATE
     Dosage: 25 G, UNK
     Route: 048
     Dates: start: 20141022
  2. TASNA [Concomitant]
     Dosage: 2000 MG, UNK
     Route: 048
     Dates: start: 20140205
  3. THIOCTACID                         /00213801/ [Concomitant]
     Active Substance: .ALPHA.-LIPOIC ACID
     Dosage: 600 MG, UNK
     Route: 048
     Dates: start: 20120720
  4. PLAVITOR [Concomitant]
     Dosage: 1 DF, UNK
     Route: 048
     Dates: start: 20130909
  5. REGPARA [Suspect]
     Active Substance: CINACALCET HYDROCHLORIDE
     Indication: HYPERPARATHYROIDISM SECONDARY
     Dosage: 25 MG, QD
     Route: 048
     Dates: start: 20151030
  6. BEECOM [Concomitant]
     Dosage: 1 DF, UNK
     Route: 048
     Dates: start: 20150410
  7. FOLIC ACID. [Concomitant]
     Active Substance: FOLIC ACID
     Dosage: 1 DF, UNK
     Route: 048
     Dates: start: 20110713
  8. ESOMEZOL                           /01479302/ [Concomitant]
     Dosage: 40 MG, UNK
     Route: 048
     Dates: start: 20140731
  9. ASPIRIN. [Concomitant]
     Active Substance: ASPIRIN
     Dosage: 100 MG, UNK
     Route: 048
     Dates: start: 20150410
  10. RENVELA [Concomitant]
     Active Substance: SEVELAMER CARBONATE
     Dosage: 6 UNK, UNK
     Route: 048
     Dates: start: 20130909
  11. ZOLPIDEM [Concomitant]
     Active Substance: ZOLPIDEM\ZOLPIDEM TARTRATE
     Dosage: 10 MG, UNK
     Route: 048
     Dates: start: 20150511

REACTIONS (2)
  - Chest discomfort [Recovered/Resolved]
  - Dyspnoea [Recovered/Resolved]

NARRATIVE: CASE EVENT DATE: 20151207
